FAERS Safety Report 10552306 (Version 2)
Quarter: 2014Q4

REPORT INFORMATION
  Report Type: Report from Study
  Country: CO (occurrence: CO)
  Receive Date: 20141029
  Receipt Date: 20141029
  Transmission Date: 20150529
  Serious: Yes (Death)
  Sender: FDA-Public Use
  Company Number: CO-BRISTOL-MYERS SQUIBB COMPANY-21311709

PATIENT
  Age: 43 Year
  Sex: Female

DRUGS (6)
  1. CODEINE [Concomitant]
     Active Substance: CODEINE
  2. ORENCIA [Suspect]
     Active Substance: ABATACEPT
     Indication: RHEUMATOID ARTHRITIS
     Route: 058
     Dates: start: 20140217, end: 20140804
  3. LOSARTAN [Concomitant]
     Active Substance: LOSARTAN
  4. PREDNISOLONE. [Concomitant]
     Active Substance: PREDNISOLONE
  5. CALCIUM [Concomitant]
     Active Substance: CALCIUM
  6. ACETAMINOPHEN. [Concomitant]
     Active Substance: ACETAMINOPHEN

REACTIONS (5)
  - Death [Fatal]
  - Dyspnoea [Not Recovered/Not Resolved]
  - Headache [Not Recovered/Not Resolved]
  - Dry mouth [Not Recovered/Not Resolved]
  - Cough [Not Recovered/Not Resolved]
